FAERS Safety Report 10210231 (Version 5)
Quarter: 2016Q3

REPORT INFORMATION
  Report Type: Spontaneous
  Country: US (occurrence: US)
  Receive Date: 20140602
  Receipt Date: 20160808
  Transmission Date: 20161109
  Serious: Yes (Hospitalization, Disabling, Other)
  Sender: FDA-Public Use
  Company Number: US-009507513-1405USA014081

PATIENT
  Sex: Female
  Weight: 54.42 kg

DRUGS (6)
  1. FOSAMAX [Suspect]
     Active Substance: ALENDRONATE SODIUM
     Indication: OSTEOPOROSIS
     Dosage: UNK
     Route: 048
     Dates: start: 199908, end: 200602
  2. FOSAMAX [Suspect]
     Active Substance: ALENDRONATE SODIUM
     Indication: OSTEOPENIA
  3. CALCIUM (UNSPECIFIED) [Concomitant]
     Active Substance: CALCIUM
     Dosage: UNK
     Route: 065
  4. VITAMINS (UNSPECIFIED) [Concomitant]
     Active Substance: VITAMINS
     Dosage: UNK
     Route: 065
  5. ACTONEL [Suspect]
     Active Substance: RISEDRONATE SODIUM
     Indication: OSTEOPOROSIS
     Dosage: 35 MG, UNK
     Route: 065
     Dates: start: 2005, end: 2011
  6. ACTONEL [Suspect]
     Active Substance: RISEDRONATE SODIUM
     Indication: OSTEOPENIA
     Dosage: UNK
     Route: 065
     Dates: start: 200602, end: 200909

REACTIONS (24)
  - Rheumatoid arthritis [Unknown]
  - Asthma [Unknown]
  - Arthralgia [Unknown]
  - Lipoma [Unknown]
  - Stress urinary incontinence [Unknown]
  - Arthritis [Unknown]
  - Osteoporosis [Not Recovered/Not Resolved]
  - Femur fracture [Not Recovered/Not Resolved]
  - Back pain [Unknown]
  - Cataract [Unknown]
  - Low turnover osteopathy [Not Recovered/Not Resolved]
  - Soft tissue mass [Unknown]
  - Musculoskeletal chest pain [Unknown]
  - Scoliosis [Unknown]
  - Hysterectomy [Unknown]
  - Stress fracture [Not Recovered/Not Resolved]
  - Fear [Unknown]
  - Tooth extraction [Unknown]
  - Irritable bowel syndrome [Unknown]
  - Cholecystectomy [Unknown]
  - Gastrooesophageal reflux disease [Unknown]
  - Anxiety [Unknown]
  - Appendicectomy [Unknown]
  - Femur fracture [Recovered/Resolved]

NARRATIVE: CASE EVENT DATE: 2006
